FAERS Safety Report 8553469-5 (Version None)
Quarter: 2012Q3

REPORT INFORMATION
  Report Type: 
  Country: None (occurrence: None)
  Receive Date: 20120731
  Receipt Date: 20120727
  Transmission Date: 20120928
  Serious: Yes (Death, Hospitalization)
  Sender: FDA-Public Use
  Company Number: FR-PFIZER INC-2012123080

PATIENT
  Age: 24 Year
  Sex: Male

DRUGS (7)
  1. TACHOSIL [Suspect]
     Dosage: 1 SPONGE
     Dates: start: 20120310, end: 20120310
  2. GENTAMICIN [Suspect]
     Dosage: UNK
     Route: 042
     Dates: start: 20120220, end: 20120229
  3. AMOXICILLIN TRIHYDRATE [Suspect]
     Dosage: UNK
     Route: 042
     Dates: start: 20120219, end: 20120229
  4. TAZOBACTAM [Suspect]
     Dosage: UNK
     Route: 042
     Dates: start: 20120306, end: 20120308
  5. CEFOTAXIME [Suspect]
     Dosage: UNK
     Route: 042
     Dates: start: 20120308, end: 20120312
  6. TACHOSIL [Suspect]
     Indication: HAEMORRHAGE
     Dosage: 2 SPONGES
     Dates: start: 20120309, end: 20120309
  7. IMIPENEM AND CILASTATIN SODIUM [Suspect]
     Dosage: UNK
     Route: 042
     Dates: start: 20120306, end: 20120309

REACTIONS (2)
  - ANTI FACTOR V ANTIBODY POSITIVE [None]
  - COAGULATION FACTOR V LEVEL DECREASED [None]
